FAERS Safety Report 23078931 (Version 1)
Quarter: 2023Q4

REPORT INFORMATION
  Report Type: Spontaneous
  Country: US (occurrence: None)
  Receive Date: 20231017
  Receipt Date: 20231017
  Transmission Date: 20240109
  Serious: Yes (Hospitalization)
  Sender: FDA-Public Use
  Company Number: None

PATIENT
  Age: 83 Year
  Sex: Female
  Weight: 81.4 kg

DRUGS (1)
  1. CEFTRIAXONE [Suspect]
     Active Substance: CEFTRIAXONE\CEFTRIAXONE SODIUM
     Indication: Pyelonephritis
     Dosage: FREQUENCY : DAILY;?
     Route: 040
     Dates: start: 20230831, end: 20230905

REACTIONS (9)
  - Dyspnoea [None]
  - Infusion related reaction [None]
  - Lethargy [None]
  - Mental status changes [None]
  - Somnolence [None]
  - Therapy cessation [None]
  - Increased tendency to bruise [None]
  - Pruritus [None]
  - Confusional state [None]

NARRATIVE: CASE EVENT DATE: 20230905
